FAERS Safety Report 19795098 (Version 1)
Quarter: 2021Q3

REPORT INFORMATION
  Report Type: Spontaneous
  Country: DE (occurrence: DE)
  Receive Date: 20210907
  Receipt Date: 20210907
  Transmission Date: 20211014
  Serious: Yes (Other)
  Sender: FDA-Public Use
  Company Number: DE-TEVA-2021-DE-1948588

PATIENT
  Age: 67 Year
  Sex: Female

DRUGS (2)
  1. COPAXONE [Suspect]
     Active Substance: GLATIRAMER ACETATE
     Indication: MULTIPLE SCLEROSIS
     Dosage: 20 MILLIGRAM DAILY; DURING THE TOTAL TREATMENT TIME, THE RATE WAS INCREASED FROM 20 MG TO 40 MG SEVE
     Route: 058
     Dates: start: 1999, end: 2017
  2. COPAXONE [Suspect]
     Active Substance: GLATIRAMER ACETATE
     Dosage: 40 MG
     Route: 058

REACTIONS (3)
  - Influenza like illness [Unknown]
  - Drug intolerance [Unknown]
  - Lymphoma [Unknown]

NARRATIVE: CASE EVENT DATE: 2017
